FAERS Safety Report 10726442 (Version 1)
Quarter: 2015Q1

REPORT INFORMATION
  Report Type: Report from Study
  Country: IN (occurrence: IN)
  Receive Date: 20150121
  Receipt Date: 20150121
  Transmission Date: 20150721
  Serious: Yes (Death)
  Sender: FDA-Public Use
  Company Number: PHHY2015IN007258

PATIENT
  Age: 33 Year
  Sex: Female

DRUGS (2)
  1. MYFORTIC [Suspect]
     Active Substance: MYCOPHENOLATE SODIUM
     Indication: TRANSPLANT
     Dosage: 180 MG, BID
     Route: 048
     Dates: start: 20141125
  2. TACSANT [Suspect]
     Active Substance: TACROLIMUS
     Indication: TRANSPLANT
     Dosage: 3 MG, BID
     Route: 048
     Dates: start: 20141125

REACTIONS (1)
  - Death [Fatal]

NARRATIVE: CASE EVENT DATE: 20141228
